FAERS Safety Report 19489072 (Version 1)
Quarter: 2021Q3

REPORT INFORMATION
  Report Type: Spontaneous
  Country: IT (occurrence: IT)
  Receive Date: 20210703
  Receipt Date: 20210703
  Transmission Date: 20211014
  Serious: Yes (Hospitalization, Other)
  Sender: FDA-Public Use
  Company Number: IT-B.I. PHARMACEUTICALS,INC./RIDGEFIELD-2021-BI-112755

PATIENT
  Age: 75 Year
  Sex: Female

DRUGS (1)
  1. PRADAXA [Suspect]
     Active Substance: DABIGATRAN ETEXILATE MESYLATE
     Indication: PRODUCT USED FOR UNKNOWN INDICATION

REACTIONS (9)
  - Traumatic haemorrhage [Unknown]
  - Abdominal wall haematoma [Unknown]
  - Spinal column injury [Unknown]
  - Sternal fracture [Unknown]
  - Mediastinal haematoma [Unknown]
  - Pancreatic cyst [Unknown]
  - Pleural effusion [Unknown]
  - Spinal fracture [Unknown]
  - Rib fracture [Unknown]
